FAERS Safety Report 19688253 (Version 2)
Quarter: 2021Q3

REPORT INFORMATION
  Report Type: Spontaneous
  Country: US (occurrence: US)
  Receive Date: 20210811
  Receipt Date: 20210818
  Transmission Date: 20211014
  Serious: Yes (Death, Hospitalization, Other)
  Sender: FDA-Public Use
  Company Number: US-INCYTE CORPORATION-2021IN007060

PATIENT

DRUGS (3)
  1. JAKAFI [Suspect]
     Active Substance: RUXOLITINIB
     Indication: LEUKAEMIA
     Dosage: 10 MILLIGRAM, BID
     Route: 048
     Dates: start: 20210605
  2. JAKAFI [Suspect]
     Active Substance: RUXOLITINIB
     Indication: ACUTE MYELOID LEUKAEMIA
     Dosage: 10 MILLIGRAM, BID
     Route: 048
     Dates: start: 202106
  3. JAKAFI [Suspect]
     Active Substance: RUXOLITINIB
     Indication: PLASMA CELL MYELOMA

REACTIONS (4)
  - Off label use [Unknown]
  - Graft versus host disease [Unknown]
  - Death [Fatal]
  - Sepsis [Unknown]
